FAERS Safety Report 14948127 (Version 6)
Quarter: 2019Q1

REPORT INFORMATION
  Report Type: Report from Study
  Country: None (occurrence: TR)
  Receive Date: 20180529
  Receipt Date: 20190315
  Transmission Date: 20190417
  Serious: Yes (Hospitalization)
  Sender: FDA-Public Use
  Company Number: TR-ABBVIE-18K-161-2369672-00

PATIENT
  Age: 67 Year
  Sex: Male
  Weight: 72 kg

DRUGS (9)
  1. DUODOPA [Suspect]
     Active Substance: CARBIDOPA\LEVODOPA
     Dosage: MD: 4.00 ML CD: 2.70 ML ED: 1.50 ML
     Route: 050
     Dates: start: 20180528, end: 20180613
  2. XANAX [Concomitant]
     Active Substance: ALPRAZOLAM
     Indication: ANXIETY
     Route: 048
  3. DUPHALAC [Concomitant]
     Active Substance: LACTULOSE
     Indication: CONSTIPATION
     Route: 048
  4. PEXA XR [Concomitant]
     Indication: PARKINSON^S DISEASE
     Route: 048
     Dates: start: 20180524
  5. LYRICA [Concomitant]
     Active Substance: PREGABALIN
     Indication: PRODUCT USED FOR UNKNOWN INDICATION
     Route: 048
  6. LYRICA [Concomitant]
     Active Substance: PREGABALIN
     Indication: SLEEP DISORDER
     Route: 048
     Dates: start: 20180524
  7. DUODOPA [Suspect]
     Active Substance: CARBIDOPA\LEVODOPA
     Indication: PARKINSON^S DISEASE
     Dosage: MD: 4.00 ML CD: 2.40 ML ED: 1.50 ML
     Route: 050
     Dates: start: 20180523, end: 20180528
  8. DUODOPA [Suspect]
     Active Substance: CARBIDOPA\LEVODOPA
     Dosage: MD (ML): 4,00 CD (ML): 2,40 ED: (ML): 1,50
     Route: 050
     Dates: start: 20180613, end: 201811
  9. DUODOPA [Suspect]
     Active Substance: CARBIDOPA\LEVODOPA
     Dosage: MD(ML):4.00 CD(ML):2.40 ED(ML):1.50
     Route: 050
     Dates: start: 20190312

REACTIONS (3)
  - Stoma site discharge [Recovered/Resolved]
  - Stoma site infection [Recovered/Resolved]
  - Infection [Recovered/Resolved]

NARRATIVE: CASE EVENT DATE: 20180528
